FAERS Safety Report 24442662 (Version 2)
Quarter: 2024Q4

REPORT INFORMATION
  Report Type: Spontaneous
  Country: US (occurrence: US)
  Receive Date: 20241016
  Receipt Date: 20241017
  Transmission Date: 20250115
  Serious: No
  Sender: ROCHE
  Company Number: US-ROCHE-3553664

PATIENT
  Age: 44 Year
  Sex: Female

DRUGS (5)
  1. EMICIZUMAB [Suspect]
     Active Substance: EMICIZUMAB
     Indication: Von Willebrand^s disease
     Dosage: WITH INDUCTION DOSING OF 3 MG/KG WEEKLY FOR 4 WEEKS,
     Route: 042
     Dates: start: 202207
  2. EMICIZUMAB [Suspect]
     Active Substance: EMICIZUMAB
     Dosage: MAINTAINED ON A DOSE OF 1.5 MG/KG WEEKLY
     Route: 042
  3. ENOXAPARIN [Concomitant]
     Active Substance: ENOXAPARIN
     Indication: Prophylaxis
  4. CRYOPRECIPITATED ANTIHEMOPHILIC FACTOR (HUMAN) [Concomitant]
     Active Substance: CRYOPRECIPITATED ANTIHEMOPHILIC FACTOR (HUMAN)
  5. VON WILLEBRAND FACTOR HUMAN [Concomitant]
     Active Substance: VON WILLEBRAND FACTOR HUMAN
     Dosage: CONCENTRATE 50 UNITS/KG THREE TIMES WEEKLY, FOR THE 6 YEARS PRIOR TO PRESENTATION

REACTIONS (1)
  - Haematuria [Recovered/Resolved]

NARRATIVE: CASE EVENT DATE: 20230301
